FAERS Safety Report 11255111 (Version 1)
Quarter: 2015Q3

REPORT INFORMATION
  Report Type: Spontaneous
  Country: US (occurrence: US)
  Receive Date: 20150709
  Receipt Date: 20150709
  Transmission Date: 20151125
  Serious: Yes (Hospitalization)
  Sender: FDA-Public Use
  Company Number: US-AUROBINDO-AUR-APL-2015-05967

PATIENT
  Sex: Female
  Weight: 115.7 kg

DRUGS (2)
  1. CEFTAROLINE [Suspect]
     Active Substance: CEFTAROLINE
     Indication: CELLULITIS
     Dosage: 600 MG, EVERY 12 HOURS
     Route: 065
  2. CLINDAMYCIN [Suspect]
     Active Substance: CLINDAMYCIN\CLINDAMYCIN PHOSPHATE
     Indication: CELLULITIS
     Dosage: 900 MG, EVERY 8 HOURS
     Route: 065

REACTIONS (2)
  - Abdominal discomfort [Recovered/Resolved]
  - Agranulocytosis [Recovered/Resolved]
